FAERS Safety Report 13227669 (Version 2)
Quarter: 2017Q2

REPORT INFORMATION
  Report Type: Spontaneous
  Country: US (occurrence: US)
  Receive Date: 20170213
  Receipt Date: 20170427
  Transmission Date: 20170830
  Serious: No
  Sender: FDA-Public Use
  Company Number: US-009507513-1701USA013747

PATIENT
  Age: 27 Year
  Sex: Female
  Weight: 59.41 kg

DRUGS (1)
  1. NEXPLANON [Suspect]
     Active Substance: ETONOGESTREL
     Dosage: THE NEXPLANON
     Route: 059
     Dates: start: 20160715, end: 20170126

REACTIONS (4)
  - Implant site discolouration [Unknown]
  - Implant site pruritus [Recovering/Resolving]
  - Implant site swelling [Recovered/Resolved]
  - Implant site erythema [Recovered/Resolved]

NARRATIVE: CASE EVENT DATE: 20160812
